FAERS Safety Report 9547736 (Version 1)
Quarter: 2013Q3

REPORT INFORMATION
  Report Type: Spontaneous
  Country: US (occurrence: None)
  Receive Date: 20130711
  Receipt Date: 20130711
  Transmission Date: 20140515
  Serious: Yes (Death)
  Sender: FDA-Public Use
  Company Number: 1262297

PATIENT
  Age: 70 Year
  Sex: Male

DRUGS (1)
  1. MORPHINE SULFATE [Suspect]
     Indication: PRODUCT USED FOR UNKNOWN INDICATION
     Dosage: 20MG/40ML, UNKNOWN, UNKNOWN, INTRAVENOUS
     Route: 042
     Dates: start: 20120304, end: 20120304

REACTIONS (1)
  - Incorrect drug administration duration [None]
